FAERS Safety Report 20318747 (Version 1)
Quarter: 2022Q1

REPORT INFORMATION
  Report Type: Spontaneous
  Country: US (occurrence: None)
  Receive Date: 20220109
  Receipt Date: 20220109
  Transmission Date: 20220423
  Serious: Yes (Other)
  Sender: FDA-Public Use
  Company Number: None

PATIENT
  Age: 64 Year
  Sex: Female
  Weight: 74.7 kg

DRUGS (7)
  1. OXYCODONE HYDROCHLORIDE [Suspect]
     Active Substance: OXYCODONE HYDROCHLORIDE
     Indication: Radiculopathy
     Dosage: OTHER QUANTITY : 1 TABLET(S);?FREQUENCY : DAILY;?
     Route: 048
     Dates: start: 20211222, end: 20220109
  2. OXYGEN [Concomitant]
     Active Substance: OXYGEN
  3. IBUPROFEN [Concomitant]
     Active Substance: IBUPROFEN
  4. LEVALBUTEROL [Concomitant]
     Active Substance: LEVALBUTEROL
  5. VITAMIN C [Concomitant]
     Active Substance: ASCORBIC ACID
  6. VITAMIN D NOS [Concomitant]
     Active Substance: VITAMIN D NOS
  7. ZINC [Concomitant]
     Active Substance: ZINC

REACTIONS (6)
  - Dizziness [None]
  - Nausea [None]
  - Asthenia [None]
  - Syncope [None]
  - Vomiting [None]
  - Diarrhoea [None]

NARRATIVE: CASE EVENT DATE: 20211222
